FAERS Safety Report 13341054 (Version 1)
Quarter: 2017Q1

REPORT INFORMATION
  Report Type: Report from Study
  Country: US (occurrence: US)
  Receive Date: 20170316
  Receipt Date: 20170316
  Transmission Date: 20170428
  Serious: Yes (Other)
  Sender: FDA-Public Use
  Company Number: US-AMGEN-USASL2017037591

PATIENT
  Age: 3 Year
  Sex: Female

DRUGS (1)
  1. ENBREL [Suspect]
     Active Substance: ETANERCEPT
     Indication: JUVENILE IDIOPATHIC ARTHRITIS
     Dosage: 4 MG, QWK
     Route: 065
     Dates: start: 201506

REACTIONS (4)
  - Juvenile idiopathic arthritis [Unknown]
  - Malaise [Unknown]
  - Mood swings [Unknown]
  - Abnormal behaviour [Unknown]
